FAERS Safety Report 8391222-6 (Version None)
Quarter: 2012Q2

REPORT INFORMATION
  Report Type: 
  Country: None (occurrence: None)
  Receive Date: 20120529
  Receipt Date: 20120524
  Transmission Date: 20120825
  Serious: Yes (Death)
  Sender: FDA-Public Use
  Company Number: TN-SANOFI-AVENTIS-2012SA037657

PATIENT
  Age: 73 Year
  Sex: Male

DRUGS (7)
  1. LASIX [Concomitant]
     Route: 048
     Dates: end: 20120303
  2. INSULATARD NPH HUMAN [Concomitant]
     Route: 058
     Dates: end: 20120303
  3. PLAVIX [Suspect]
     Route: 048
     Dates: start: 20110910, end: 20120303
  4. ASPEGIC 1000 [Concomitant]
     Route: 048
     Dates: end: 20120303
  5. PRAZOSIN HCL [Concomitant]
     Route: 048
     Dates: end: 20120303
  6. ALLOPURINOL [Concomitant]
     Route: 048
     Dates: end: 20120303
  7. PLAVIX [Suspect]
     Route: 048
     Dates: start: 20110910, end: 20120303

REACTIONS (3)
  - DYSPNOEA [None]
  - CHEST PAIN [None]
  - MYOCARDIAL INFARCTION [None]
